FAERS Safety Report 6542163-8 (Version None)
Quarter: 2010Q1

REPORT INFORMATION
  Report Type: 
  Country: None (occurrence: None)
  Receive Date: 20100119
  Receipt Date: 20100114
  Transmission Date: 20100710
  Serious: Yes (Hospitalization, Other)
  Sender: FDA-Public Use
  Company Number: IT-JNJFOC-20100104798

PATIENT
  Age: 73 Year
  Sex: Male

DRUGS (4)
  1. PRIXAR [Suspect]
     Indication: BRONCHITIS
     Route: 048
     Dates: start: 20091201, end: 20091202
  2. METFORAL [Concomitant]
     Indication: TYPE 2 DIABETES MELLITUS
     Route: 048
  3. CARDIRENE [Concomitant]
     Indication: ISCHAEMIC STROKE
     Route: 048
  4. TRIATEC [Concomitant]
     Indication: HYPERTENSION
     Route: 065

REACTIONS (3)
  - CONFUSIONAL STATE [None]
  - DISORIENTATION [None]
  - EPILEPSY [None]
